FAERS Safety Report 7693824-9 (Version None)
Quarter: 2011Q3

REPORT INFORMATION
  Report Type: 
  Country: None (occurrence: None)
  Receive Date: 20110819
  Receipt Date: 20110622
  Transmission Date: 20111222
  Serious: No
  Sender: FDA-Public Use
  Company Number: US-ALLERGAN-1108480US

PATIENT
  Age: 59 Year
  Sex: Female

DRUGS (3)
  1. LASTACAFT [Suspect]
     Indication: LACRIMATION INCREASED
     Dosage: 2 GTT, QD
     Route: 047
     Dates: start: 20110610, end: 20110616
  2. REFRESH TEARS [Concomitant]
     Indication: EYE IRRIGATION
     Dosage: UNK
     Route: 047
  3. LASTACAFT [Suspect]
     Indication: EYE PRURITUS

REACTIONS (6)
  - SKIN BURNING SENSATION [None]
  - EYE DISCHARGE [None]
  - ERYTHEMA OF EYELID [None]
  - OCULAR HYPERAEMIA [None]
  - EYE IRRITATION [None]
  - ERYTHEMA [None]
